FAERS Safety Report 12574698 (Version 1)
Quarter: 2016Q3

REPORT INFORMATION
  Report Type: Spontaneous
  Country: DK (occurrence: DK)
  Receive Date: 20160720
  Receipt Date: 20160720
  Transmission Date: 20161109
  Serious: Yes (Congenital Anomaly)
  Sender: FDA-Public Use
  Company Number: DK-PFIZER INC-2016340693

PATIENT
  Sex: Female
  Weight: 3.57 kg

DRUGS (5)
  1. FORTAMOL [Suspect]
     Active Substance: ACETAMINOPHEN\CODEINE PHOSPHATE
     Indication: PAIN
     Dosage: 2 DF, AS NEEDED; STRENGTH: 28.7 + 400 MG, DOSE: 2 TABLETS AS NEEDED (MAX 4X/DAY)
     Route: 064
     Dates: start: 201101, end: 20110128
  2. MORFIN /00036301/ [Suspect]
     Active Substance: MORPHINE SULFATE
     Indication: PAIN
     Dosage: STRENGTH: 5 MG/ML. DOSE: 5-10 MG AS NEEDED
     Route: 064
     Dates: start: 201101
  3. MORFIN DAK [Suspect]
     Active Substance: MORPHINE HYDROCHLORIDE
     Dosage: 10 MG, AS NEEDED
  4. MORFIN DAK [Suspect]
     Active Substance: MORPHINE HYDROCHLORIDE
     Indication: PAIN
     Dosage: STRENGTH: 20 MG/ML. DOSE: 5-10 MG AS NEEDED
     Route: 064
     Dates: start: 201101
  5. FRAGMIN [Suspect]
     Active Substance: DALTEPARIN SODIUM
     Indication: THROMBOSIS PROPHYLAXIS
     Dosage: 5000 IU, DAILY
     Route: 064
     Dates: start: 20111114

REACTIONS (2)
  - Hypoacusis [Not Recovered/Not Resolved]
  - Foetal exposure during pregnancy [Recovered/Resolved]
